FAERS Safety Report 22229028 (Version 1)
Quarter: 2023Q2

REPORT INFORMATION
  Report Type: Spontaneous
  Country: US (occurrence: US)
  Receive Date: 20230419
  Receipt Date: 20230419
  Transmission Date: 20230722
  Serious: No
  Sender: FDA-Public Use
  Company Number: US-SCILEX PHARMACEUTICALS INC.-2022SCX00029

PATIENT
  Sex: Female

DRUGS (2)
  1. ZTLIDO [Suspect]
     Active Substance: LIDOCAINE
     Indication: Post herpetic neuralgia
     Dosage: 1 PATCH APPLIED FOR 12 HOURS ON AND 12 HOURS OFF
     Route: 061
     Dates: start: 20220816
  2. LISINOPRIL [Concomitant]
     Active Substance: LISINOPRIL

REACTIONS (1)
  - Feeling hot [Not Recovered/Not Resolved]

NARRATIVE: CASE EVENT DATE: 20220818
